FAERS Safety Report 11640998 (Version 1)
Quarter: 2015Q4

REPORT INFORMATION
  Report Type: Spontaneous
  Country: US (occurrence: US)
  Receive Date: 20151019
  Receipt Date: 20151019
  Transmission Date: 20160304
  Serious: No
  Sender: FDA-Public Use
  Company Number: US-ACTELION PHARMACEUTICALS US, INC.-A-NJ2015-125741

PATIENT
  Age: 49 Year
  Sex: Female

DRUGS (5)
  1. REVATIO [Concomitant]
     Active Substance: SILDENAFIL CITRATE
  2. VENTAVIS [Suspect]
     Active Substance: ILOPROST
     Indication: PULMONARY HYPERTENSION
     Dosage: UNK, 6-9X/DAY
     Route: 055
     Dates: start: 20130322
  3. VENTAVIS [Suspect]
     Active Substance: ILOPROST
     Dosage: UNK, QID
     Route: 055
  4. LETAIRIS [Concomitant]
     Active Substance: AMBRISENTAN
  5. VENTAVIS [Suspect]
     Active Substance: ILOPROST
     Dosage: UNK, 6-9X/DAY
     Route: 055

REACTIONS (5)
  - Respiratory tract congestion [Unknown]
  - Dysphonia [Unknown]
  - Nasopharyngitis [Unknown]
  - Headache [Recovering/Resolving]
  - Pyrexia [Recovering/Resolving]
